FAERS Safety Report 25542947 (Version 2)
Quarter: 2025Q3

REPORT INFORMATION
  Report Type: Spontaneous
  Country: US (occurrence: US)
  Receive Date: 20250711
  Receipt Date: 20250721
  Transmission Date: 20251020
  Serious: No
  Sender: MYLAN
  Company Number: US-MYLANLABS-2025M1055526

PATIENT
  Sex: Female
  Weight: 38.56 kg

DRUGS (12)
  1. ESTRADIOL TRANSDERMAL SYSTEM [Suspect]
     Active Substance: ESTRADIOL
     Indication: Postmenopause
     Dosage: 0.075 MILLIGRAM, QD (PER DAYTWICE-WEEKLY)
  2. ESTRADIOL TRANSDERMAL SYSTEM [Suspect]
     Active Substance: ESTRADIOL
     Dosage: 0.075 MILLIGRAM, QD (PER DAYTWICE-WEEKLY)
     Route: 062
  3. ESTRADIOL TRANSDERMAL SYSTEM [Suspect]
     Active Substance: ESTRADIOL
     Dosage: 0.075 MILLIGRAM, QD (PER DAYTWICE-WEEKLY)
     Route: 062
  4. ESTRADIOL TRANSDERMAL SYSTEM [Suspect]
     Active Substance: ESTRADIOL
     Dosage: 0.075 MILLIGRAM, QD (PER DAYTWICE-WEEKLY)
  5. PROGESTERONE [Concomitant]
     Active Substance: PROGESTERONE
     Indication: Autoimmune hepatitis
  6. PROGESTERONE [Concomitant]
     Active Substance: PROGESTERONE
     Route: 065
  7. PROGESTERONE [Concomitant]
     Active Substance: PROGESTERONE
     Route: 065
  8. PROGESTERONE [Concomitant]
     Active Substance: PROGESTERONE
  9. TESTOSTERONE [Concomitant]
     Active Substance: TESTOSTERONE
     Indication: Autoimmune hepatitis
  10. TESTOSTERONE [Concomitant]
     Active Substance: TESTOSTERONE
     Route: 065
  11. TESTOSTERONE [Concomitant]
     Active Substance: TESTOSTERONE
     Route: 065
  12. TESTOSTERONE [Concomitant]
     Active Substance: TESTOSTERONE

REACTIONS (2)
  - Product dose omission issue [Unknown]
  - Product adhesion issue [Unknown]

NARRATIVE: CASE EVENT DATE: 20250101
